FAERS Safety Report 10144351 (Version 1)
Quarter: 2014Q2

REPORT INFORMATION
  Report Type: Spontaneous
  Country: AR (occurrence: AR)
  Receive Date: 20140430
  Receipt Date: 20140430
  Transmission Date: 20141212
  Serious: Yes (Other)
  Sender: FDA-Public Use
  Company Number: AR-BAXTER-2014BAX020797

PATIENT
  Age: 46 Year
  Sex: Male

DRUGS (5)
  1. KIOVIG / INMUNOGLOBULINA HUMANA NORMAL [Suspect]
     Indication: IMMUNOSUPPRESSANT DRUG THERAPY
     Route: 042
  2. THYMOGLOBULIN [Suspect]
     Indication: IMMUNOSUPPRESSANT DRUG THERAPY
     Route: 065
  3. MYCOPHENOLATE MOFETIL [Suspect]
     Indication: IMMUNOSUPPRESSANT DRUG THERAPY
     Route: 065
  4. TACROLIMUS [Suspect]
     Indication: IMMUNOSUPPRESSANT DRUG THERAPY
     Dosage: 8-10 NG/ML
     Route: 065
  5. BORTEZOMIB [Suspect]
     Indication: IMMUNOSUPPRESSANT DRUG THERAPY
     Route: 065

REACTIONS (1)
  - Pneumonia [Unknown]
